FAERS Safety Report 8280891-7 (Version None)
Quarter: 2012Q2

REPORT INFORMATION
  Report Type: 
  Country: None (occurrence: None)
  Receive Date: 20120412
  Receipt Date: 20120410
  Transmission Date: 20120825
  Serious: Yes (Hospitalization, Other)
  Sender: FDA-Public Use
  Company Number: JP-ABBOTT-11P-087-0881460-00

PATIENT
  Sex: Male
  Weight: 72 kg

DRUGS (7)
  1. HUMIRA [Suspect]
     Indication: PSORIASIS
     Route: 058
     Dates: start: 20110422, end: 20110422
  2. CLOBETASOL PROPIONATE [Concomitant]
     Indication: PSORIASIS
     Route: 061
     Dates: start: 20110208
  3. FEXOFENADINE HYDROCHLORIDE [Concomitant]
     Indication: PRURITUS
     Route: 048
     Dates: start: 20110208
  4. HUMIRA [Suspect]
     Dates: start: 20110506, end: 20110916
  5. CALCIPOTRIOL [Concomitant]
     Indication: PSORIASIS
     Route: 061
     Dates: start: 20110208
  6. CYCLOSPORINE [Concomitant]
     Dates: end: 20110520
  7. CYCLOSPORINE [Concomitant]
     Indication: PSORIASIS
     Route: 048
     Dates: start: 20110422

REACTIONS (2)
  - AORTIC ANEURYSM [None]
  - INTERSTITIAL LUNG DISEASE [None]
